FAERS Safety Report 7202063-7 (Version None)
Quarter: 2010Q4

REPORT INFORMATION
  Report Type: 
  Country: None (occurrence: None)
  Receive Date: 20101229
  Receipt Date: 20101217
  Transmission Date: 20110411
  Serious: Yes (Death, Hospitalization)
  Sender: FDA-Public Use
  Company Number: IL-WATSON-2010-16238

PATIENT
  Age: 58 Year
  Sex: Male

DRUGS (1)
  1. NAPROXEN SODIUM [Suspect]
     Indication: OSTEOARTHRITIS
     Dosage: UNK

REACTIONS (6)
  - LEUKOCYTOCLASTIC VASCULITIS [None]
  - PNEUMONIA [None]
  - PYREXIA [None]
  - RESPIRATORY FAILURE [None]
  - UPPER GASTROINTESTINAL HAEMORRHAGE [None]
  - VASCULITIS NECROTISING [None]
